FAERS Safety Report 17110075 (Version 3)
Quarter: 2020Q1

REPORT INFORMATION
  Report Type: Report from Study
  Country: US (occurrence: US)
  Receive Date: 20191204
  Receipt Date: 20200206
  Transmission Date: 20200409
  Serious: Yes (Death, Hospitalization)
  Sender: FDA-Public Use
  Company Number: US-ROCHE-2421273

PATIENT
  Age: 82 Year
  Sex: Male
  Weight: 79.6 kg

DRUGS (9)
  1. VENETOCLAX. [Suspect]
     Active Substance: VENETOCLAX
     Route: 048
     Dates: start: 20190921
  2. VENETOCLAX. [Suspect]
     Active Substance: VENETOCLAX
     Route: 048
     Dates: start: 20191004
  3. ELIQUIS [Concomitant]
     Active Substance: APIXABAN
  4. OBINUTUZUMAB. [Suspect]
     Active Substance: OBINUTUZUMAB
     Indication: CHRONIC LYMPHOCYTIC LEUKAEMIA
     Dosage: ON 05/SEP/2019, HE RECEIVED MOST RECENT DOSE OF OBINUTUZUMAB PRIOR TO THE ONSET OF SERIOUS ADVERSE E
     Route: 042
     Dates: start: 20190711
  5. VENETOCLAX. [Suspect]
     Active Substance: VENETOCLAX
     Indication: CHRONIC LYMPHOCYTIC LEUKAEMIA
     Dosage: ON 02/OCT/2019, HE RECEIVED MOST RECENT DOSE OF VENETOCLAX PRIOR TO THE ONSET OF SERIOUS ADVERSE EVE
     Route: 048
     Dates: start: 20190711
  6. ASPIRIN [ACETYLSALICYLIC ACID] [Concomitant]
     Active Substance: ASPIRIN
  7. NORCO [Concomitant]
     Active Substance: ACETAMINOPHEN\HYDROCODONE BITARTRATE
  8. IBRUTINIB [Suspect]
     Active Substance: IBRUTINIB
     Indication: CHRONIC LYMPHOCYTIC LEUKAEMIA
     Dosage: ON 02/OCT/2019, HE RECEIVED MOST RECENT DOSE PRIOR TO THE ONSET OF SERIOUS ADVERSE EVENT.
     Route: 048
     Dates: start: 20190711
  9. TYLENOL [Concomitant]
     Active Substance: ACETAMINOPHEN

REACTIONS (5)
  - Muscular weakness [Recovering/Resolving]
  - Death [Fatal]
  - Dyspnoea [Recovering/Resolving]
  - Fatigue [Recovering/Resolving]
  - Back pain [Recovering/Resolving]

NARRATIVE: CASE EVENT DATE: 20190911
